FAERS Safety Report 23192077 (Version 1)
Quarter: 2023Q4

REPORT INFORMATION
  Report Type: Spontaneous
  Country: US (occurrence: None)
  Receive Date: 20231116
  Receipt Date: 20231116
  Transmission Date: 20240110
  Serious: Yes (Hospitalization)
  Sender: FDA-Public Use
  Company Number: None

PATIENT
  Sex: Male

DRUGS (2)
  1. GENOTROPIN [Suspect]
     Active Substance: SOMATROPIN
     Indication: Growth disorder
     Dosage: 0.2MG DAILY UNDER THE SKIN
     Route: 058
     Dates: start: 202302
  2. TOBRAMYCIN [Concomitant]

REACTIONS (3)
  - Respiratory syncytial virus infection [None]
  - Oxygen saturation decreased [None]
  - Traumatic lung injury [None]
